FAERS Safety Report 6979556-0 (Version None)
Quarter: 2010Q3

REPORT INFORMATION
  Report Type: 
  Country: None (occurrence: None)
  Receive Date: 20100910
  Receipt Date: 20100910
  Transmission Date: 20110219
  Serious: Yes (Other)
  Sender: FDA-Public Use
  Company Number: None

PATIENT
  Age: 54 Year
  Sex: Male
  Weight: 78.9259 kg

DRUGS (1)
  1. ATENOLOL [Suspect]
     Indication: HEART RATE IRREGULAR
     Dosage: 1 TABLET ONCE DAILY PO
     Route: 048
     Dates: start: 20100601, end: 20100802

REACTIONS (5)
  - BLOOD PRESSURE INCREASED [None]
  - DRUG INEFFECTIVE [None]
  - INSOMNIA [None]
  - PAIN IN EXTREMITY [None]
  - PALPITATIONS [None]
